FAERS Safety Report 10714507 (Version 3)
Quarter: 2015Q3

REPORT INFORMATION
  Report Type: Spontaneous
  Country: US (occurrence: US)
  Receive Date: 20150115
  Receipt Date: 20150708
  Transmission Date: 20151125
  Serious: Yes (Hospitalization, Other)
  Sender: FDA-Public Use
  Company Number: US-009507513-1105USA02744

PATIENT
  Sex: Female
  Weight: 81.63 kg

DRUGS (3)
  1. FOSAMAX [Suspect]
     Active Substance: ALENDRONATE SODIUM
     Indication: BONE DENSITY DECREASED
     Dosage: 70 MG, UNK
     Route: 048
     Dates: start: 2004, end: 2009
  2. FOSAMAX [Suspect]
     Active Substance: ALENDRONATE SODIUM
     Indication: OSTEOPOROSIS
  3. ALENDRONATE SODIUM. [Suspect]
     Active Substance: ALENDRONATE SODIUM
     Indication: BONE DENSITY DECREASED
     Dosage: 70 MG, UNK
     Dates: start: 2009, end: 2013

REACTIONS (34)
  - Atrial fibrillation [Unknown]
  - Cardiac failure congestive [Unknown]
  - Bone disorder [Unknown]
  - Radiotherapy [Unknown]
  - Gastrooesophageal reflux disease [Unknown]
  - Intramedullary rod insertion [Unknown]
  - Fall [Unknown]
  - Haemorrhoid operation [Unknown]
  - Ecchymosis [Unknown]
  - Pain in extremity [Unknown]
  - Iliotibial band syndrome [Unknown]
  - Femur fracture [Recovered/Resolved]
  - Appendicectomy [Unknown]
  - Wound closure [Unknown]
  - Hypertension [Unknown]
  - Osteopenia [Unknown]
  - Migraine [Unknown]
  - Haemoglobin decreased [Unknown]
  - Depression [Unknown]
  - Coronary artery disease [Unknown]
  - Facial bones fracture [Unknown]
  - Basedow^s disease [Unknown]
  - Impaired healing [Unknown]
  - Back disorder [Unknown]
  - Irritable bowel syndrome [Unknown]
  - Fibromyalgia [Unknown]
  - Cholecystectomy [Unknown]
  - Transient ischaemic attack [Unknown]
  - Cataract operation [Unknown]
  - Bursitis [Unknown]
  - Acute kidney injury [Unknown]
  - Cataract [Unknown]
  - Anxiety [Unknown]
  - Insomnia [Not Recovered/Not Resolved]

NARRATIVE: CASE EVENT DATE: 2009
